FAERS Safety Report 25664845 (Version 4)
Quarter: 2025Q4

REPORT INFORMATION
  Report Type: Report from Study
  Country: AR (occurrence: AR)
  Receive Date: 20250811
  Receipt Date: 20251020
  Transmission Date: 20260118
  Serious: Yes (Hospitalization, Other)
  Sender: TAKEDA
  Company Number: AR-TAKEDA-2025TUS070654

PATIENT
  Age: 86 Year
  Sex: Female

DRUGS (1)
  1. VEDOLIZUMAB [Suspect]
     Active Substance: VEDOLIZUMAB
     Indication: Colitis ulcerative
     Dosage: 300 MILLIGRAM

REACTIONS (11)
  - Haematochezia [Recovered/Resolved]
  - Haemorrhage [Unknown]
  - Bacterial infection [Unknown]
  - Dehydration [Unknown]
  - Pneumonia [Recovering/Resolving]
  - Abnormal faeces [Recovered/Resolved]
  - Diarrhoea [Unknown]
  - Food intolerance [Unknown]
  - Abdominal pain [Unknown]
  - Asthenia [Unknown]
  - Blood pressure increased [Recovered/Resolved]

NARRATIVE: CASE EVENT DATE: 20250731
